APPROVED DRUG PRODUCT: OPTIRAY 350
Active Ingredient: IOVERSOL
Strength: 74%
Dosage Form/Route: INJECTABLE;INJECTION
Application: N020923 | Product #003
Applicant: LIEBEL-FLARSHEIM CO LLC
Approved: May 28, 1998 | RLD: Yes | RS: Yes | Type: RX